FAERS Safety Report 5508329-0 (Version None)
Quarter: 2007Q4

REPORT INFORMATION
  Report Type: 
  Country: None (occurrence: None)
  Receive Date: 20071106
  Receipt Date: 20071026
  Transmission Date: 20080405
  Serious: Yes (Other)
  Sender: FDA-Public Use
  Company Number: US-PFIZER INC-2007091541

PATIENT
  Sex: Male

DRUGS (3)
  1. LIPITOR [Suspect]
     Indication: BLOOD CHOLESTEROL INCREASED
  2. FOLIC ACID [Concomitant]
  3. LISINOPRIL AND HYDROCHLOROTHIAZIDE [Concomitant]

REACTIONS (7)
  - HYPOAESTHESIA [None]
  - MUSCLE SPASMS [None]
  - PAIN IN EXTREMITY [None]
  - PROSTATIC SPECIFIC ANTIGEN INCREASED [None]
  - PROSTATOMEGALY [None]
  - TENDON PAIN [None]
  - WEIGHT DECREASED [None]
